FAERS Safety Report 6795175-3 (Version None)
Quarter: 2010Q2

REPORT INFORMATION
  Report Type: 
  Country: None (occurrence: None)
  Receive Date: 20100624
  Receipt Date: 20100624
  Transmission Date: 20101027
  Serious: Yes (Other)
  Sender: FDA-Public Use
  Company Number: None

PATIENT
  Age: 58 Year
  Sex: Male
  Weight: 91.6266 kg

DRUGS (1)
  1. MIDAZOLAM HCL [Suspect]
     Indication: ANAESTHESIA
     Dosage: 4MG MIDAZOLAM IV
     Route: 042
     Dates: start: 20100616

REACTIONS (2)
  - AGGRESSION [None]
  - PSYCHOTIC DISORDER [None]
